FAERS Safety Report 5264347-1 (Version None)
Quarter: 2007Q1

REPORT INFORMATION
  Report Type: 
  Country: None (occurrence: None)
  Receive Date: 20070309
  Receipt Date: 20070307
  Transmission Date: 20070707
  Serious: Yes (Hospitalization, Disabling)
  Sender: FDA-Public Use
  Company Number: TCI2007A00853

PATIENT
  Age: 76 Year
  Sex: Male

DRUGS (4)
  1. LANSOPRAZOLE [Suspect]
     Indication: REFLUX OESOPHAGITIS
     Dosage: 10 MG (10 MG, 1 IN 1 D) PER ORAL
     Route: 048
     Dates: start: 20070101, end: 20070201
  2. ASPIRIN [Suspect]
     Dosage: 100 MG (100 MG, 1 IN 1 D) PER ORAL
     Route: 048
  3. NITROL [Suspect]
     Dosage: PER ORAL
     Route: 048
  4. WARFARIN (WARFARIN POTASSIUM) (TABLETS) [Concomitant]

REACTIONS (5)
  - AZOTAEMIA [None]
  - HAEMODIALYSIS [None]
  - REFLUX OESOPHAGITIS [None]
  - RENAL FAILURE ACUTE [None]
  - RENAL TUBULAR DISORDER [None]
